FAERS Safety Report 25738646 (Version 1)
Quarter: 2025Q3

REPORT INFORMATION
  Report Type: Spontaneous
  Country: US (occurrence: US)
  Receive Date: 20250829
  Receipt Date: 20250829
  Transmission Date: 20251021
  Serious: No
  Sender: MDD OPERATIONS
  Company Number: US-002147023-MDD202507-002459

PATIENT
  Age: 66 Year
  Sex: Female

DRUGS (8)
  1. ONAPGO [Suspect]
     Active Substance: APOMORPHINE HYDROCHLORIDE
     Indication: Parkinson^s disease
  2. ONAPGO [Suspect]
     Active Substance: APOMORPHINE HYDROCHLORIDE
     Indication: Dyskinesia
     Dosage: NOT PROVIDED
     Dates: start: 202506
  3. ONAPGO [Suspect]
     Active Substance: APOMORPHINE HYDROCHLORIDE
     Indication: On and off phenomenon
     Dosage: 13 HOURS A DAY
     Dates: start: 20250728
  4. ONAPGO [Suspect]
     Active Substance: APOMORPHINE HYDROCHLORIDE
     Dosage: STRENGTH: 98MG/20ML, INFUSE CONTENTS OF 1 CARTRIDGE UNDER THE SKIN FOR 16 HOURS OR LESS EACH DAY. CO
     Route: 058
     Dates: start: 202505
  5. APOKYN [Concomitant]
     Active Substance: APOMORPHINE HYDROCHLORIDE
     Indication: Product used for unknown indication
     Dosage: NOT PROVIDED
     Dates: start: 202506
  6. CARBIDOPA\LEVODOPA [Concomitant]
     Active Substance: CARBIDOPA\LEVODOPA
     Indication: Parkinson^s disease
  7. AMANTADINE [Concomitant]
     Active Substance: AMANTADINE
  8. INBRIJA [Concomitant]
     Active Substance: LEVODOPA

REACTIONS (10)
  - Vision blurred [Recovered/Resolved]
  - Abdominal pain upper [Recovered/Resolved]
  - Urinary tract infection [Recovered/Resolved]
  - Somnolence [Recovering/Resolving]
  - Nausea [Recovered/Resolved]
  - Dizziness [Recovered/Resolved]
  - Somnolence [Recovered/Resolved]
  - Fatigue [Recovered/Resolved]
  - Injection site nodule [Recovered/Resolved]
  - Device issue [Unknown]

NARRATIVE: CASE EVENT DATE: 20250101
